FAERS Safety Report 11624513 (Version 21)
Quarter: 2017Q2

REPORT INFORMATION
  Report Type: Report from Study
  Country: CA (occurrence: CA)
  Receive Date: 20151013
  Receipt Date: 20170407
  Transmission Date: 20170829
  Serious: Yes (Hospitalization, Other)
  Sender: FDA-Public Use
  Company Number: PHHY2014CA150722

PATIENT
  Age: 78 Year
  Sex: Female

DRUGS (2)
  1. SANDOSTATIN LAR DEPOT [Suspect]
     Active Substance: OCTREOTIDE ACETATE
     Indication: CARCINOID TUMOUR PULMONARY
     Dosage: 20 MG, QMO (ONCE A MONTH)
     Route: 030
     Dates: start: 20141112
  2. SANDOSTATIN LAR DEPOT [Suspect]
     Active Substance: OCTREOTIDE ACETATE
     Dosage: 40 MG,  QMO, EVERY 4 WEEKS
     Route: 030
     Dates: start: 20151102, end: 2017

REACTIONS (41)
  - Productive cough [Unknown]
  - Gait disturbance [Unknown]
  - Nodule [Unknown]
  - Alopecia [Unknown]
  - Concomitant disease aggravated [Unknown]
  - Viral upper respiratory tract infection [Unknown]
  - Computerised tomogram abnormal [Unknown]
  - Haemoptysis [Unknown]
  - Lower respiratory tract infection [Recovering/Resolving]
  - Vein disorder [Unknown]
  - Musculoskeletal stiffness [Unknown]
  - Insomnia [Unknown]
  - Joint range of motion decreased [Unknown]
  - Wheezing [Unknown]
  - Nausea [Unknown]
  - Haematemesis [Unknown]
  - Pneumonia [Unknown]
  - Contusion [Unknown]
  - Influenza [Unknown]
  - Pain in extremity [Unknown]
  - Gastrointestinal disorder [Unknown]
  - Mobility decreased [Unknown]
  - Dyspnoea [Unknown]
  - Osteoarthritis [Not Recovered/Not Resolved]
  - Peripheral swelling [Unknown]
  - Pain [Unknown]
  - Condition aggravated [Unknown]
  - Anal incontinence [Unknown]
  - Sputum discoloured [Unknown]
  - Musculoskeletal pain [Unknown]
  - Cough [Unknown]
  - Frequent bowel movements [Unknown]
  - Weight decreased [Unknown]
  - Dehydration [Unknown]
  - Lung neoplasm [Unknown]
  - Malaise [Unknown]
  - Fatigue [Unknown]
  - Feeling abnormal [Unknown]
  - Blood pressure systolic increased [Unknown]
  - Asthenia [Recovering/Resolving]
  - Diarrhoea [Unknown]

NARRATIVE: CASE EVENT DATE: 20141112
